FAERS Safety Report 8185264-3 (Version None)
Quarter: 2012Q1

REPORT INFORMATION
  Report Type: 
  Country: None (occurrence: None)
  Receive Date: 20120305
  Receipt Date: 20120224
  Transmission Date: 20120608
  Serious: Yes (Hospitalization, Other)
  Sender: FDA-Public Use
  Company Number: PHHY2010CA45291

PATIENT
  Sex: Male

DRUGS (4)
  1. SANDOSTATIN LAR [Suspect]
     Dosage: 20 MG EVERY 4 WEEKS
     Route: 030
  2. SANDOSTATIN LAR [Suspect]
     Indication: NEUROENDOCRINE CARCINOMA
     Dosage: 30 MG, QMO
     Route: 030
     Dates: start: 20100506
  3. AFINITOR [Suspect]
     Indication: NEUROENDOCRINE CARCINOMA
     Dosage: 05 MG EVERY DAY
     Route: 048
     Dates: start: 20110325
  4. SANDOSTATIN LAR [Suspect]
     Dosage: 20 MG, QMO
     Route: 030
     Dates: start: 20100704

REACTIONS (7)
  - HAEMOGLOBIN DECREASED [None]
  - BLOOD PRESSURE SYSTOLIC INCREASED [None]
  - HEPATIC PAIN [None]
  - ANAEMIA [None]
  - LEUKOPENIA [None]
  - PATHOLOGICAL FRACTURE [None]
  - METASTASES TO BONE [None]
